FAERS Safety Report 7555549-X (Version None)
Quarter: 2011Q2

REPORT INFORMATION
  Report Type: 
  Country: None (occurrence: None)
  Receive Date: 20110617
  Receipt Date: 20030702
  Transmission Date: 20111010
  Serious: Yes (Death)
  Sender: FDA-Public Use
  Company Number: PHFR2003GB02470

PATIENT
  Sex: Female
  Weight: 66.82 kg

DRUGS (5)
  1. ATORVASTATIN [Concomitant]
     Indication: HYPERLIPIDAEMIA
     Dosage: 20 MG, QD
     Dates: start: 20030303
  2. DIPYRIDAMOLE [Concomitant]
     Indication: TRANSIENT ISCHAEMIC ATTACK
     Dosage: 400 MG, QD
     Dates: start: 20030303
  3. STARLIX [Suspect]
     Indication: DIABETES MELLITUS
     Dosage: 540 MG, QD
     Route: 048
     Dates: start: 20030109
  4. ASPIRIN [Concomitant]
     Indication: HYPERTENSION
     Dates: start: 19940930
  5. METFORMIN HCL [Concomitant]
     Indication: DIABETES MELLITUS
     Dosage: 1500 MG, QD
     Dates: start: 19961112

REACTIONS (4)
  - PERICARDIAL HAEMORRHAGE [None]
  - CORONARY ARTERY THROMBOSIS [None]
  - CIRCULATORY COLLAPSE [None]
  - MYOCARDIAL INFARCTION [None]
